FAERS Safety Report 5957243-5 (Version None)
Quarter: 2008Q4

REPORT INFORMATION
  Report Type: 
  Country: None (occurrence: None)
  Receive Date: 20081118
  Receipt Date: 20081107
  Transmission Date: 20090506
  Serious: Yes (Other)
  Sender: FDA-Public Use
  Company Number: US-ELI_LILLY_AND_COMPANY-US200811001895

PATIENT
  Sex: Female

DRUGS (9)
  1. EXENATIDE [Suspect]
     Indication: TYPE 2 DIABETES MELLITUS
     Dosage: 5 UG, 2/D
     Route: 058
     Dates: start: 20060101, end: 20060101
  2. EXENATIDE [Suspect]
     Dosage: 10 UG, 2/D
     Route: 058
     Dates: start: 20060101
  3. EXENATIDE [Suspect]
     Dosage: 20 UG, OTHER
     Route: 058
     Dates: start: 20070101, end: 20070101
  4. EXENATIDE [Suspect]
     Dosage: 20 UG, OTHER
     Route: 058
     Dates: start: 20081101, end: 20081101
  5. METAGLIP [Concomitant]
     Route: 048
  6. COZAAR [Concomitant]
     Route: 048
  7. SYNTHROID [Concomitant]
     Route: 048
  8. PROGESTERONE [Concomitant]
     Indication: HORMONE REPLACEMENT THERAPY
  9. CLIMARA [Concomitant]
     Indication: HORMONE REPLACEMENT THERAPY
     Route: 062

REACTIONS (7)
  - BLOOD GLUCOSE INCREASED [None]
  - BONE NEOPLASM [None]
  - INCORRECT DOSE ADMINISTERED [None]
  - MEMORY IMPAIRMENT [None]
  - NAUSEA [None]
  - PROCEDURAL PAIN [None]
  - VOMITING [None]
